FAERS Safety Report 16941906 (Version 1)
Quarter: 2019Q4

REPORT INFORMATION
  Report Type: Spontaneous
  Country: US (occurrence: US)
  Receive Date: 20191021
  Receipt Date: 20191021
  Transmission Date: 20200122
  Serious: Yes (Other)
  Sender: FDA-Public Use
  Company Number: US-PFIZER INC-2019450438

PATIENT
  Age: 15 Year
  Sex: Female
  Weight: 16.33 kg

DRUGS (1)
  1. RAPAMUNE [Suspect]
     Active Substance: SIROLIMUS
     Indication: LYMPHADENOPATHY
     Dosage: 0.3 ML, 1X/DAY(0.3ML ONCE A DAY VIA G-TUBE)
     Dates: start: 2018

REACTIONS (4)
  - Pulmonary thrombosis [Unknown]
  - Product use in unapproved indication [Unknown]
  - Dyspnoea [Unknown]
  - Off label use [Unknown]
